FAERS Safety Report 20006365 (Version 1)
Quarter: 2021Q4

REPORT INFORMATION
  Report Type: Spontaneous
  Country: US (occurrence: US)
  Receive Date: 20211028
  Receipt Date: 20211028
  Transmission Date: 20220303
  Serious: No
  Sender: FDA-Public Use
  Company Number: US-DRREDDYS-SPO/USA/21/0142925

PATIENT
  Age: 49 Year
  Sex: Male
  Weight: 94.5 kg

DRUGS (3)
  1. NICOTINE [Suspect]
     Active Substance: NICOTINE
     Indication: Tobacco user
     Route: 062
     Dates: start: 20211013
  2. SIMVASTATIN [Concomitant]
     Active Substance: SIMVASTATIN
     Indication: Product used for unknown indication
  3. WELLBUTRIN [Concomitant]
     Active Substance: BUPROPION HYDROCHLORIDE
     Indication: Product used for unknown indication

REACTIONS (2)
  - Product adhesion issue [Unknown]
  - Treatment noncompliance [Unknown]
